FAERS Safety Report 12423836 (Version 1)
Quarter: 2016Q2

REPORT INFORMATION
  Report Type: Spontaneous
  Country: US (occurrence: US)
  Receive Date: 20160601
  Receipt Date: 20160601
  Transmission Date: 20160815
  Serious: No
  Sender: FDA-Public Use
  Company Number: US-NOVEN PHARMACEUTICALS, INC.-US2015000977

PATIENT
  Age: 15 Year
  Sex: Male

DRUGS (4)
  1. DAYTRANA [Suspect]
     Active Substance: METHYLPHENIDATE
     Dosage: 20 MG, UNK
     Route: 062
  2. DAYTRANA [Suspect]
     Active Substance: METHYLPHENIDATE
     Dosage: USING 20MG AND 10MG PATCH TOGETHER, UNKNOWN
     Route: 062
     Dates: start: 201504
  3. DAYTRANA [Suspect]
     Active Substance: METHYLPHENIDATE
     Dosage: 30 MG, UNK
     Route: 062
     Dates: end: 201504
  4. DAYTRANA [Suspect]
     Active Substance: METHYLPHENIDATE
     Indication: ATTENTION DEFICIT/HYPERACTIVITY DISORDER
     Dosage: 10 MG, UNKNOWN
     Route: 062
     Dates: start: 201310

REACTIONS (4)
  - Wrong technique in product usage process [Not Recovered/Not Resolved]
  - No adverse event [Unknown]
  - Off label use [Not Recovered/Not Resolved]
  - Treatment noncompliance [Unknown]

NARRATIVE: CASE EVENT DATE: 201504
